FAERS Safety Report 12631746 (Version 2)
Quarter: 2016Q3

REPORT INFORMATION
  Report Type: Spontaneous
  Country: US (occurrence: US)
  Receive Date: 20160808
  Receipt Date: 20160808
  Transmission Date: 20161109
  Serious: No
  Sender: FDA-Public Use
  Company Number: US-BEH-2016060884

PATIENT
  Sex: Female
  Weight: 60 kg

DRUGS (21)
  1. WARFARIN [Concomitant]
     Active Substance: WARFARIN
  2. PREDNISONE. [Concomitant]
     Active Substance: PREDNISONE
  3. CARVEDILOL. [Concomitant]
     Active Substance: CARVEDILOL
  4. CARAFATE [Concomitant]
     Active Substance: SUCRALFATE
  5. TRAMADOL. [Concomitant]
     Active Substance: TRAMADOL
  6. ZYRTEC [Concomitant]
     Active Substance: CETIRIZINE HYDROCHLORIDE
  7. BENAZEPRIL [Concomitant]
     Active Substance: BENAZEPRIL HYDROCHLORIDE
  8. HYDROXYCHLOROQUINE [Concomitant]
     Active Substance: HYDROXYCHLOROQUINE
  9. HIZENTRA [Suspect]
     Active Substance: HUMAN IMMUNOGLOBULIN G
     Route: 058
  10. EPIPEN [Concomitant]
     Active Substance: EPINEPHRINE
  11. METHOTREXATE. [Concomitant]
     Active Substance: METHOTREXATE
  12. LASIX [Concomitant]
     Active Substance: FUROSEMIDE
  13. SINGULAIR [Concomitant]
     Active Substance: MONTELUKAST SODIUM
  14. FLOVENT [Concomitant]
     Active Substance: FLUTICASONE PROPIONATE
  15. ASPIRIN EC [Concomitant]
     Active Substance: ASPIRIN
  16. DIPHENHYDRAMINE. [Concomitant]
     Active Substance: DIPHENHYDRAMINE
  17. CYCLOBENZAPRINE [Concomitant]
     Active Substance: CYCLOBENZAPRINE
  18. SUCRALFATE. [Concomitant]
     Active Substance: SUCRALFATE
  19. MULTIPLE VITAMIN WOMEN^S [Concomitant]
  20. RANITIDINE. [Concomitant]
     Active Substance: RANITIDINE
  21. OMEPRAZOLE. [Concomitant]
     Active Substance: OMEPRAZOLE

REACTIONS (1)
  - Sinusitis [Unknown]
